FAERS Safety Report 10960794 (Version 1)
Quarter: 2015Q1

REPORT INFORMATION
  Report Type: Spontaneous
  Country: None (occurrence: None)
  Receive Date: 20150326
  Receipt Date: 20150326
  Transmission Date: 20150721
  Serious: Yes (Hospitalization, Disabling)
  Sender: FDA-Public Use
  Company Number: None

PATIENT
  Age: 65 Year
  Sex: Male
  Weight: 80 kg

DRUGS (14)
  1. LOSARTAN (COZAAR) [Concomitant]
  2. WARFARIN (COUMADIN) [Concomitant]
  3. ASCORBIC ACID (VITAMIN C) [Concomitant]
     Active Substance: ASCORBIC ACID
  4. HYDROCODONE-ACETAMINOPHEN (NORCO) [Concomitant]
  5. BICALUTAMIDE (CABODEX) [Concomitant]
  6. CALCIUM [Concomitant]
     Active Substance: CALCIUM
  7. PANTOPRAZOLE (PROTONIX) [Concomitant]
  8. DENOSUMAB [Suspect]
     Active Substance: DENOSUMAB
     Indication: PROSTATE CANCER METASTATIC
     Dates: start: 20150219
  9. DENOSUMAB [Suspect]
     Active Substance: DENOSUMAB
     Indication: METASTASES TO BONE
     Dates: start: 20150219
  10. CHOLECALCIFEROL (VITAMIN D3) [Concomitant]
  11. LOVENOX [Concomitant]
     Active Substance: ENOXAPARIN SODIUM
  12. METOPROLOL (LOPRESSOR) [Concomitant]
  13. MULTIVITAMIN [Concomitant]
     Active Substance: VITAMINS
  14. VITAMIN E [Concomitant]
     Active Substance: .ALPHA.-TOCOPHEROL

REACTIONS (3)
  - Fatigue [None]
  - Hypocalcaemia [None]
  - Alcohol withdrawal syndrome [None]

NARRATIVE: CASE EVENT DATE: 20150314
